FAERS Safety Report 7951074-2 (Version None)
Quarter: 2011Q4

REPORT INFORMATION
  Report Type: 
  Country: None (occurrence: None)
  Receive Date: 20111201
  Receipt Date: 20111122
  Transmission Date: 20120403
  Serious: Yes (Life-Threatening)
  Sender: FDA-Public Use
  Company Number: GB-BAYER-2011-112897

PATIENT
  Age: 40 Year
  Sex: Female
  Weight: 60 kg

DRUGS (4)
  1. FERROUS SULFATE TAB [Concomitant]
  2. MEBENDAZOLE [Concomitant]
  3. TRANEXAMIC ACID [Concomitant]
  4. MIRENA [Suspect]
     Indication: MENORRHAGIA
     Dosage: UNK
     Route: 015
     Dates: start: 20101111, end: 20110124

REACTIONS (1)
  - BREAST CANCER FEMALE [None]
